FAERS Safety Report 5448250-X (Version None)
Quarter: 2007Q3

REPORT INFORMATION
  Report Type: 
  Country: None (occurrence: None)
  Receive Date: 20070911
  Receipt Date: 20070905
  Transmission Date: 20080115
  Serious: Yes (Death, Hospitalization)
  Sender: FDA-Public Use
  Company Number: PHBS2007PH13875

PATIENT
  Age: 62 Year
  Sex: Female

DRUGS (11)
  1. ZELNORM [Suspect]
     Indication: DIABETIC GASTROPATHY
     Dosage: 6 MG, TID
     Route: 048
     Dates: start: 20040323
  2. METFORMIN HCL [Concomitant]
  3. DIOVAN [Concomitant]
  4. SIMVASTATIN [Concomitant]
  5. LIPITOR [Concomitant]
     Dosage: 20 MG, QD
     Route: 065
  6. ATENOLOL [Concomitant]
     Dosage: 50 MG, QD
     Route: 065
  7. ANGIOZEM [Concomitant]
     Dosage: 30 MG, TID
     Route: 065
  8. IRBESARTAN [Concomitant]
     Dosage: 150 MG, QD
     Route: 065
  9. FUROSEMIDE [Concomitant]
     Dosage: 40 MG, QD
     Route: 065
  10. GLYBURIDE [Concomitant]
     Dosage: 5 MG, TID
     Route: 065
  11. SULODEXIDE [Concomitant]
     Dosage: 1 DF, BID
     Route: 048

REACTIONS (2)
  - ACUTE CORONARY SYNDROME [None]
  - MYOCARDIAL INFARCTION [None]
